FAERS Safety Report 8820662 (Version 1)
Quarter: 2012Q4

REPORT INFORMATION
  Report Type: 
  Country: FR (occurrence: FR)
  Receive Date: 20121002
  Receipt Date: 20121002
  Transmission Date: 20130627
  Serious: Yes (Other)
  Sender: FDA-Public Use
  Company Number: FR-PURDUE-USA-2012-0093783

PATIENT
  Sex: Male

DRUGS (6)
  1. TRAMADOL (SIMILAR TO NDA 21-745) [Suspect]
     Indication: PRODUCT USED FOR UNKNOWN INDICATION
     Dosage: unknown
     Route: 065
     Dates: start: 201005, end: 201005
  2. NEURONTIN [Concomitant]
  3. DOLIPRANE [Concomitant]
  4. EDUCTYL [Concomitant]
  5. LIDOCAINE [Concomitant]
  6. LEXOMIL [Concomitant]
     Dosage: unknown
     Route: 065

REACTIONS (1)
  - Epilepsy [Recovered/Resolved]
